FAERS Safety Report 25199189 (Version 1)
Quarter: 2025Q2

REPORT INFORMATION
  Report Type: Spontaneous
  Country: US (occurrence: None)
  Receive Date: 20250415
  Receipt Date: 20250415
  Transmission Date: 20250716
  Serious: No
  Sender: FDA-CTU
  Company Number: None

PATIENT
  Age: 50 Year
  Sex: Female

DRUGS (1)
  1. MAVYRET [Suspect]
     Active Substance: GLECAPREVIR\PIBRENTASVIR
     Indication: Hepatitis
     Dosage: FREQUENCY : DAILY;?
     Route: 048
     Dates: start: 20250319

REACTIONS (3)
  - Incorrect dose administered [None]
  - Product dose omission issue [None]
  - Memory impairment [None]

NARRATIVE: CASE EVENT DATE: 20250301
